FAERS Safety Report 16483752 (Version 1)
Quarter: 2019Q2

REPORT INFORMATION
  Report Type: Spontaneous
  Country: US (occurrence: US)
  Receive Date: 20190627
  Receipt Date: 20190627
  Transmission Date: 20190711
  Serious: Yes (Hospitalization, Other)
  Sender: FDA-Public Use
  Company Number: US-MYLANLABS-2019M1059382

PATIENT
  Age: 56 Year
  Sex: Female

DRUGS (1)
  1. HYDROXYCHLOROQUINE [Suspect]
     Active Substance: HYDROXYCHLOROQUINE
     Indication: AUTOIMMUNE DISORDER
     Route: 065

REACTIONS (2)
  - Epstein-Barr virus infection [Unknown]
  - Drug reaction with eosinophilia and systemic symptoms [Recovered/Resolved]
